FAERS Safety Report 7558439-1 (Version None)
Quarter: 2011Q2

REPORT INFORMATION
  Report Type: 
  Country: None (occurrence: None)
  Receive Date: 20110620
  Receipt Date: 20110608
  Transmission Date: 20111010
  Serious: Yes (Other)
  Sender: FDA-Public Use
  Company Number: US-CELGENEUS-163-21880-10090512

PATIENT
  Sex: Female

DRUGS (11)
  1. REVLIMID [Suspect]
     Indication: MULTIPLE MYELOMA
     Dosage: 25 MILLIGRAM
     Route: 048
     Dates: start: 20081001
  2. REVLIMID [Suspect]
     Dosage: 10 MILLIGRAM
     Route: 048
     Dates: start: 20101228, end: 20110113
  3. REVLIMID [Suspect]
     Dosage: 10 MILLIGRAM
     Route: 048
     Dates: start: 20090401
  4. REVLIMID [Suspect]
     Dosage: 10-15 MG
     Route: 048
     Dates: start: 20100401
  5. REVLIMID [Suspect]
     Dosage: 20 MILLIGRAM
     Route: 048
     Dates: start: 20100622, end: 20100624
  6. REVLIMID [Suspect]
     Dosage: 10 MILLIGRAM
     Route: 048
     Dates: start: 20100409
  7. REVLIMID [Suspect]
     Dosage: 5 MILLIGRAM
     Route: 048
     Dates: start: 20110307, end: 20110324
  8. REVLIMID [Suspect]
     Dosage: 15 MILLIGRAM
     Route: 048
     Dates: start: 20100730, end: 20100806
  9. PAIN MEDICATION [Concomitant]
     Indication: PAIN
     Route: 065
  10. TACROLIMUS [Concomitant]
     Dosage: .5 MILLIGRAM
     Route: 048
     Dates: start: 20100116
  11. AREDIA [Concomitant]
     Indication: MULTIPLE MYELOMA
     Route: 051
     Dates: start: 20100222, end: 20100526

REACTIONS (2)
  - BLOOD HUMAN CHORIONIC GONADOTROPIN INCREASED [None]
  - NEUTROPHIL COUNT DECREASED [None]
